FAERS Safety Report 16661976 (Version 1)
Quarter: 2019Q3

REPORT INFORMATION
  Report Type: Report from Study
  Country: US (occurrence: US)
  Receive Date: 20190802
  Receipt Date: 20190802
  Transmission Date: 20191004
  Serious: No
  Sender: FDA-Public Use
  Company Number: US-EXELIXIS-CABO-19018920

PATIENT
  Age: 74 Year
  Sex: Male

DRUGS (1)
  1. CABOMETYX [Suspect]
     Active Substance: CABOZANTINIB S-MALATE
     Indication: RENAL CANCER
     Dosage: 40 MG, QD (TWO TABLETS OF 20 MG)
     Route: 048
     Dates: start: 20190204

REACTIONS (5)
  - Oral discomfort [Unknown]
  - Rash [Unknown]
  - Skin burning sensation [Unknown]
  - Fatigue [Unknown]
  - Dysphonia [Unknown]

NARRATIVE: CASE EVENT DATE: 201902
